FAERS Safety Report 5520327-X (Version None)
Quarter: 2007Q4

REPORT INFORMATION
  Report Type: 
  Country: None (occurrence: None)
  Receive Date: 20071119
  Receipt Date: 20071108
  Transmission Date: 20080405
  Serious: Yes (Death)
  Sender: FDA-Public Use
  Company Number: FI-JNJFOC-20071007768

PATIENT
  Sex: Female

DRUGS (4)
  1. REMICADE [Suspect]
     Indication: CROHN'S DISEASE
     Route: 042
  2. AZATHIOPRINE [Concomitant]
     Indication: CROHN'S DISEASE
     Route: 048
  3. 5-ASA [Concomitant]
     Indication: CROHN'S DISEASE
     Dosage: DOSE 3 TABLETS TWICE A DAY
     Route: 048
  4. PREDNISOLONE [Concomitant]
     Indication: CROHN'S DISEASE
     Dosage: 1 TABLET EVERY SECOND DAY
     Route: 048

REACTIONS (1)
  - SQUAMOUS CELL CARCINOMA [None]
